FAERS Safety Report 7217518-9 (Version None)
Quarter: 2010Q4

REPORT INFORMATION
  Report Type: 
  Country: None (occurrence: None)
  Receive Date: 20101223
  Receipt Date: 20101217
  Transmission Date: 20110411
  Serious: Yes (Hospitalization, Other)
  Sender: FDA-Public Use
  Company Number: 2009SP030810

PATIENT
  Age: 40 Year
  Sex: Female
  Weight: 55.7924 kg

DRUGS (15)
  1. NUVARING [Suspect]
     Indication: CONTRACEPTION
     Dates: start: 20040901, end: 20080324
  2. NUVARING [Suspect]
  3. WELLBUTRIN [Concomitant]
  4. LEXAPRO [Concomitant]
  5. CANASA [Concomitant]
  6. CELEXA [Concomitant]
  7. NYSTATIN [Concomitant]
  8. MESALAMINE [Concomitant]
  9. AKNE-MYCIN [Concomitant]
  10. DOXYCYCLINE [Concomitant]
  11. HYDROCODONE [Concomitant]
  12. PREDNISONE [Concomitant]
  13. DIFFERIN [Concomitant]
  14. ALPRAZOLAM [Concomitant]
  15. OXYCODONE HCL [Concomitant]

REACTIONS (39)
  - ABDOMINAL PAIN UPPER [None]
  - ALANINE AMINOTRANSFERASE INCREASED [None]
  - AORTIC ARTERIOSCLEROSIS [None]
  - APPENDICITIS [None]
  - ASPARTATE AMINOTRANSFERASE INCREASED [None]
  - BILIARY DYSKINESIA [None]
  - BREAST CYST [None]
  - CEREBROVASCULAR DISORDER [None]
  - CSF PROTEIN INCREASED [None]
  - DEEP VEIN THROMBOSIS [None]
  - DRUG INEFFECTIVE [None]
  - DYSPAREUNIA [None]
  - DYSPNOEA [None]
  - FISTULA [None]
  - HAEMATOCHEZIA [None]
  - HEADACHE [None]
  - HEPATOTOXICITY [None]
  - HERPES SIMPLEX [None]
  - HIV INFECTION [None]
  - HYPERCOAGULATION [None]
  - INTRACRANIAL VENOUS SINUS THROMBOSIS [None]
  - JUGULAR VEIN THROMBOSIS [None]
  - NAUSEA [None]
  - NEOPLASM OF APPENDIX [None]
  - NEURALGIA [None]
  - NEUROLOGICAL SYMPTOM [None]
  - PELVIC PAIN [None]
  - PROCTITIS [None]
  - RECTAL HAEMORRHAGE [None]
  - RED BLOOD CELLS CSF POSITIVE [None]
  - SINUSITIS [None]
  - SUBDURAL HAEMORRHAGE [None]
  - TRANSVERSE SINUS THROMBOSIS [None]
  - TREATMENT NONCOMPLIANCE [None]
  - VAGINAL DISCHARGE [None]
  - VAGINITIS GARDNERELLA [None]
  - VOMITING [None]
  - VULVOVAGINITIS STREPTOCOCCAL [None]
  - WEIGHT INCREASED [None]
